FAERS Safety Report 7667551-8 (Version None)
Quarter: 2011Q3

REPORT INFORMATION
  Report Type: 
  Country: None (occurrence: None)
  Receive Date: 20110806
  Receipt Date: 20110516
  Transmission Date: 20111222
  Serious: No
  Sender: FDA-Public Use
  Company Number: US-ABBOTT-11P-163-0725993-00

PATIENT
  Sex: Male
  Weight: 90.8 kg

DRUGS (5)
  1. LISINOPRIL [Concomitant]
     Indication: HYPERTENSION
  2. DILANTIN [Concomitant]
     Indication: CONVULSION
  3. METOPROLOL TARTRATE [Concomitant]
     Indication: HYPERTENSION
  4. NIASPAN [Suspect]
     Indication: BLOOD TRIGLYCERIDES INCREASED
     Route: 048
     Dates: start: 20100101, end: 20110513
  5. TRILIPIX [Concomitant]
     Indication: BLOOD TRIGLYCERIDES INCREASED

REACTIONS (3)
  - NIGHT SWEATS [None]
  - DIARRHOEA [None]
  - PALPITATIONS [None]
